FAERS Safety Report 17501352 (Version 1)
Quarter: 2020Q1

REPORT INFORMATION
  Report Type: Spontaneous
  Country: US (occurrence: US)
  Receive Date: 20200304
  Receipt Date: 20200304
  Transmission Date: 20200409
  Serious: Yes (Hospitalization, Other)
  Sender: FDA-Public Use
  Company Number: None

PATIENT
  Age: 19 Year
  Sex: Female
  Weight: 65.7 kg

DRUGS (1)
  1. CEPHALEXIN. [Suspect]
     Active Substance: CEPHALEXIN
     Indication: URINARY TRACT INFECTION
     Dosage: ?          QUANTITY:21 CAPSULE(S);?
     Route: 048
     Dates: start: 20200219, end: 20200226

REACTIONS (3)
  - Vomiting [None]
  - Hepatic enzyme increased [None]
  - Nausea [None]

NARRATIVE: CASE EVENT DATE: 20200301
